FAERS Safety Report 5968604-2 (Version None)
Quarter: 2008Q4

REPORT INFORMATION
  Report Type: 
  Country: None (occurrence: None)
  Receive Date: 20081126
  Receipt Date: 20081119
  Transmission Date: 20090506
  Serious: Yes (Hospitalization)
  Sender: FDA-Public Use
  Company Number: CG-MERCK-0811USA03648

PATIENT
  Age: 21 Year
  Sex: Female
  Weight: 47 kg

DRUGS (1)
  1. STROMECTOL [Suspect]
     Indication: ONCHOCERCIASIS
     Route: 048
     Dates: start: 20080718, end: 20080718

REACTIONS (6)
  - DIARRHOEA [None]
  - FAECAL INCONTINENCE [None]
  - HEADACHE [None]
  - LOSS OF CONSCIOUSNESS [None]
  - URINARY INCONTINENCE [None]
  - VOMITING [None]
